FAERS Safety Report 10084609 (Version 1)
Quarter: 2014Q2

REPORT INFORMATION
  Report Type: Spontaneous
  Country: US (occurrence: US)
  Receive Date: 20140417
  Receipt Date: 20140417
  Transmission Date: 20141212
  Serious: Yes (Death)
  Sender: FDA-Public Use
  Company Number: US-BRISTOL-MYERS SQUIBB COMPANY-20620605

PATIENT
  Age: 62 Year
  Sex: Female

DRUGS (22)
  1. EXENATIDE [Suspect]
  2. VICODIN [Concomitant]
     Dosage: 1DF=10/325UNITS NOS
  3. DIGITEK [Concomitant]
  4. XANAX [Concomitant]
  5. PHENERGAN [Concomitant]
  6. NEXIUM [Concomitant]
  7. LASIX [Concomitant]
  8. ZOCOR [Concomitant]
  9. PAXIL [Concomitant]
  10. LANTUS [Concomitant]
     Dosage: 1DF=85UNITS
  11. APIDRA [Concomitant]
  12. VICTOZA [Concomitant]
  13. TANDEM [Concomitant]
     Dosage: 1DF=1CAP
  14. CYCLOBENZAPRINE HCL [Concomitant]
  15. CHROMIUM PICOLINATE [Concomitant]
  16. GLUCOSAMINE [Concomitant]
  17. MULTIVITAMIN [Concomitant]
  18. COENZYME-Q10 [Concomitant]
  19. FISH OIL [Concomitant]
  20. NIACIN [Concomitant]
  21. VITAMIN B12 [Concomitant]
  22. MS CONTIN [Concomitant]
     Route: 048

REACTIONS (2)
  - Pancreatic carcinoma metastatic [Fatal]
  - Cardio-respiratory arrest [Fatal]
